FAERS Safety Report 7641262-7 (Version None)
Quarter: 2011Q3

REPORT INFORMATION
  Report Type: 
  Country: None (occurrence: None)
  Receive Date: 20110728
  Receipt Date: 20110721
  Transmission Date: 20111222
  Serious: Yes (Death, Other)
  Sender: FDA-Public Use
  Company Number: JP-JNJFOC-20090809113

PATIENT
  Sex: Female
  Weight: 48 kg

DRUGS (21)
  1. LOXONIN [Concomitant]
     Route: 048
     Dates: start: 20090731, end: 20090804
  2. DOXORUBICIN HCL [Suspect]
     Dosage: CYCLE 2
     Route: 042
     Dates: start: 20090615, end: 20090615
  3. AZUNOL [Concomitant]
     Route: 049
     Dates: start: 20090519, end: 20090804
  4. RIKKUNSHI-TO [Concomitant]
     Route: 048
     Dates: start: 20080811, end: 20080908
  5. FAMOTIDINE [Concomitant]
     Indication: PROPHYLAXIS
     Route: 048
     Dates: start: 20070920, end: 20090501
  6. LANSOPRAZOLE [Concomitant]
     Indication: PROPHYLAXIS
     Route: 048
     Dates: start: 20081125, end: 20090804
  7. MOHRUS TAPE [Concomitant]
     Route: 062
     Dates: start: 20090126, end: 20090804
  8. DOXORUBICIN HCL [Suspect]
     Indication: OVARIAN CANCER RECURRENT
     Dosage: CYCLE 1
     Route: 042
     Dates: start: 20090519, end: 20090519
  9. PROCHLORPERAZINE [Concomitant]
     Route: 048
     Dates: start: 20080128, end: 20090401
  10. LAC-B [Concomitant]
     Route: 048
     Dates: start: 20081027, end: 20090314
  11. PRIMPERAN TAB [Concomitant]
     Route: 048
     Dates: start: 20071006, end: 20090226
  12. SELBEX [Concomitant]
     Route: 048
     Dates: start: 20090731, end: 20090804
  13. MAGMITT [Concomitant]
     Route: 048
     Dates: start: 20071012, end: 20090804
  14. DOXORUBICIN HCL [Suspect]
     Dosage: CYCLE 3
     Route: 042
     Dates: start: 20090713, end: 20090713
  15. URSO 250 [Concomitant]
     Indication: PROPHYLAXIS
     Route: 048
     Dates: start: 20090213, end: 20090406
  16. LOPERAMIDE HCL [Concomitant]
     Route: 048
     Dates: start: 20090227, end: 20090330
  17. WARFARIN SODIUM [Concomitant]
     Route: 048
     Dates: start: 20090120, end: 20090804
  18. KETOPROFEN [Concomitant]
     Route: 061
     Dates: start: 20090126, end: 20090804
  19. HANGE-SHASHIN-TO (CHINESE HERBAL MEDICINE) [Concomitant]
     Indication: PROPHYLAXIS
     Route: 048
     Dates: start: 20090213, end: 20090406
  20. NAPROXEN [Concomitant]
     Route: 048
     Dates: start: 20071019, end: 20071201
  21. SODIUM BICARBONATE [Concomitant]
     Indication: PROPHYLAXIS
     Route: 048
     Dates: start: 20090213, end: 20090406

REACTIONS (5)
  - NEUTROPENIA [None]
  - GASTROINTESTINAL PERFORATION [None]
  - OVARIAN CANCER [None]
  - ANAEMIA [None]
  - HYPERKALAEMIA [None]
